FAERS Safety Report 19405847 (Version 1)
Quarter: 2021Q2

REPORT INFORMATION
  Report Type: Spontaneous
  Country: CN (occurrence: CN)
  Receive Date: 20210611
  Receipt Date: 20210611
  Transmission Date: 20210717
  Serious: Yes (Other)
  Sender: FDA-Public Use
  Company Number: CN-009507513-2106CHN001457

PATIENT
  Age: 66 Year
  Sex: Male
  Weight: 64 kg

DRUGS (2)
  1. TIENAM [Suspect]
     Active Substance: CILASTATIN SODIUM\IMIPENEM
     Indication: FEBRILE INFECTION
     Dosage: 0.5 G, TID (ALSO REPORTED AS Q8H), POWDER FOR INJECTION
     Route: 041
     Dates: start: 20210519, end: 20210519
  2. SODIUM CHLORIDE. [Concomitant]
     Active Substance: SODIUM CHLORIDE
     Dosage: 100 ML, TID (ALSO REPORTED AS Q8H), INJECTION
     Route: 041
     Dates: start: 20210519, end: 20210519

REACTIONS (2)
  - Drug hypersensitivity [Recovered/Resolved]
  - Rubella [Recovered/Resolved]

NARRATIVE: CASE EVENT DATE: 20210519
